FAERS Safety Report 26102683 (Version 1)
Quarter: 2025Q4

REPORT INFORMATION
  Report Type: Spontaneous
  Country: CA (occurrence: CA)
  Receive Date: 20251128
  Receipt Date: 20251128
  Transmission Date: 20260117
  Serious: Yes (Other)
  Sender: PFIZER
  Company Number: CA-PFIZER INC-PV202500139276

PATIENT
  Age: 79 Year
  Sex: Male
  Weight: 89.5 kg

DRUGS (1)
  1. IXIFI [Suspect]
     Active Substance: INFLIXIMAB-QBTX
     Indication: Colitis ulcerative
     Dosage: 447 MG EVERY 6 WEEKS
     Route: 042
     Dates: start: 20250716

REACTIONS (1)
  - Cataract [Recovering/Resolving]
